FAERS Safety Report 19225371 (Version 1)
Quarter: 2021Q2

REPORT INFORMATION
  Report Type: Report from Study
  Country: US (occurrence: US)
  Receive Date: 20210506
  Receipt Date: 20210506
  Transmission Date: 20210717
  Serious: Yes (Hospitalization)
  Sender: FDA-Public Use
  Company Number: US-MYLANLABS-2021M1027072

PATIENT
  Sex: Female

DRUGS (26)
  1. OXCARBAZEPINE. [Suspect]
     Active Substance: OXCARBAZEPINE
     Indication: GELASTIC SEIZURE
  2. TOPIRAMATE. [Concomitant]
     Active Substance: TOPIRAMATE
     Indication: GELASTIC SEIZURE
  3. VALPROIC ACID. [Suspect]
     Active Substance: VALPROIC ACID
     Indication: GELASTIC SEIZURE
  4. PHENYTOIN. [Concomitant]
     Active Substance: PHENYTOIN
     Indication: GELASTIC SEIZURE
  5. CLOBAZAM. [Concomitant]
     Active Substance: CLOBAZAM
     Indication: GELASTIC SEIZURE
  6. LEVETIRACETAM. [Suspect]
     Active Substance: LEVETIRACETAM
     Indication: GELASTIC SEIZURE
  7. FELBAMATE. [Suspect]
     Active Substance: FELBAMATE
     Indication: GELASTIC SEIZURE
  8. VALPROIC ACID. [Suspect]
     Active Substance: VALPROIC ACID
     Indication: MYOCLONIC EPILEPSY
     Dosage: UNK
     Route: 065
  9. LEVETIRACETAM. [Suspect]
     Active Substance: LEVETIRACETAM
     Indication: MYOCLONIC EPILEPSY
     Dosage: UNK
     Route: 065
  10. LAMOTRIGINE. [Suspect]
     Active Substance: LAMOTRIGINE
     Indication: GELASTIC SEIZURE
  11. PHENYTOIN. [Concomitant]
     Active Substance: PHENYTOIN
     Indication: MYOCLONIC EPILEPSY
     Dosage: UNK
     Route: 065
  12. TOPIRAMATE. [Concomitant]
     Active Substance: TOPIRAMATE
     Indication: MYOCLONIC EPILEPSY
     Dosage: UNK
     Route: 065
  13. CLONAZEPAM. [Suspect]
     Active Substance: CLONAZEPAM
     Indication: MYOCLONIC EPILEPSY
     Dosage: UNK
     Route: 065
  14. RILUZOLE. [Suspect]
     Active Substance: RILUZOLE
     Indication: GELASTIC SEIZURE
  15. PRIMIDONE. [Suspect]
     Active Substance: PRIMIDONE
     Indication: GELASTIC SEIZURE
  16. PRIMIDONE. [Suspect]
     Active Substance: PRIMIDONE
     Indication: MYOCLONIC EPILEPSY
     Dosage: UNK
     Route: 065
  17. OXCARBAZEPINE. [Suspect]
     Active Substance: OXCARBAZEPINE
     Indication: MYOCLONIC EPILEPSY
     Dosage: UNK
     Route: 065
  18. CLONAZEPAM. [Suspect]
     Active Substance: CLONAZEPAM
     Indication: GELASTIC SEIZURE
  19. LAMOTRIGINE. [Suspect]
     Active Substance: LAMOTRIGINE
     Indication: MYOCLONIC EPILEPSY
     Dosage: UNK
     Route: 065
  20. GABAPENTIN. [Suspect]
     Active Substance: GABAPENTIN
     Indication: MYOCLONIC EPILEPSY
     Dosage: UNK
     Route: 065
  21. GABAPENTIN. [Suspect]
     Active Substance: GABAPENTIN
     Indication: GELASTIC SEIZURE
  22. ZONISAMIDE. [Suspect]
     Active Substance: ZONISAMIDE
     Indication: GELASTIC SEIZURE
  23. CLOBAZAM. [Concomitant]
     Active Substance: CLOBAZAM
     Indication: MYOCLONIC EPILEPSY
     Dosage: UNK
     Route: 065
  24. ZONISAMIDE. [Suspect]
     Active Substance: ZONISAMIDE
     Indication: MYOCLONIC EPILEPSY
     Dosage: UNK
     Route: 065
  25. FELBAMATE. [Suspect]
     Active Substance: FELBAMATE
     Indication: MYOCLONIC EPILEPSY
     Dosage: UNK
     Route: 065
  26. RILUZOLE. [Suspect]
     Active Substance: RILUZOLE
     Indication: MYOCLONIC EPILEPSY
     Dosage: 25 MILLIGRAM, QD
     Route: 065

REACTIONS (2)
  - Off label use [Unknown]
  - Drug ineffective [Unknown]
